FAERS Safety Report 13908093 (Version 1)
Quarter: 2017Q3

REPORT INFORMATION
  Report Type: Spontaneous
  Country: US (occurrence: US)
  Receive Date: 20170825
  Receipt Date: 20170825
  Transmission Date: 20171127
  Serious: No
  Sender: FDA-Public Use
  Company Number: US-ROCHE-1115942

PATIENT
  Sex: Male
  Weight: 76.27 kg

DRUGS (2)
  1. NUTROPIN [Suspect]
     Active Substance: SOMATROPIN
     Dosage: DOUBLE DOSE
     Route: 065
     Dates: start: 200803
  2. NUTROPIN [Suspect]
     Active Substance: SOMATROPIN
     Indication: BODY HEIGHT BELOW NORMAL
     Route: 065

REACTIONS (4)
  - Feeling abnormal [Unknown]
  - Pain [Unknown]
  - Drug dose omission [Unknown]
  - Arthralgia [Unknown]
